FAERS Safety Report 7460700-6 (Version None)
Quarter: 2011Q2

REPORT INFORMATION
  Report Type: 
  Country: None (occurrence: None)
  Receive Date: 20110505
  Receipt Date: 20110428
  Transmission Date: 20111010
  Serious: Yes (Other)
  Sender: FDA-Public Use
  Company Number: DE-US-EMD SERONO, INC.-7008850

PATIENT
  Sex: Female
  Weight: 85 kg

DRUGS (5)
  1. REBIF [Suspect]
     Dates: start: 20080701, end: 20081001
  2. REBIF [Suspect]
     Indication: MULTIPLE SCLEROSIS
     Dates: start: 20080601, end: 20080701
  3. REBIF [Suspect]
     Dates: start: 20100601, end: 20100622
  4. REBIF [Suspect]
     Dates: start: 20081001, end: 20100601
  5. MIRTAZAPIN [Concomitant]
     Dates: start: 20091201

REACTIONS (22)
  - HEPATIC ENZYME INCREASED [None]
  - CENTRAL NERVOUS SYSTEM LESION [None]
  - VERTIGO [None]
  - ORAL HERPES [None]
  - INJECTION SITE ANAESTHESIA [None]
  - PHOTOPHOBIA [None]
  - SLEEP DISORDER [None]
  - TRANSAMINASES INCREASED [None]
  - DEPRESSED MOOD [None]
  - SKIN REACTION [None]
  - WEIGHT INCREASED [None]
  - DYSPHAGIA [None]
  - INFLUENZA [None]
  - LIVER DISORDER [None]
  - ASTHENOPIA [None]
  - BACK PAIN [None]
  - INJECTION SITE ECZEMA [None]
  - DEPRESSIVE SYMPTOM [None]
  - HEPATOMEGALY [None]
  - RESPIRATORY RATE INCREASED [None]
  - INJECTION SITE VASCULITIS [None]
  - FATIGUE [None]
